FAERS Safety Report 9175970 (Version 1)
Quarter: 2013Q1

REPORT INFORMATION
  Report Type: Spontaneous
  Country: ES (occurrence: ES)
  Receive Date: 20130320
  Receipt Date: 20130320
  Transmission Date: 20140127
  Serious: Yes (Other)
  Sender: FDA-Public Use
  Company Number: ES-MYLANLABS-2013S1005460

PATIENT
  Age: 45 Year
  Sex: Female

DRUGS (3)
  1. METHOTREXATE [Suspect]
     Indication: ARTHRALGIA
     Route: 058
  2. INFLIXIMAB [Concomitant]
     Indication: PSORIASIS
     Route: 065
  3. INFLIXIMAB [Concomitant]
     Indication: PSORIATIC ARTHROPATHY
     Route: 065

REACTIONS (1)
  - Pleurisy [Unknown]
